FAERS Safety Report 20981201 (Version 1)
Quarter: 2022Q2

REPORT INFORMATION
  Report Type: Spontaneous
  Country: JP (occurrence: JP)
  Receive Date: 20220620
  Receipt Date: 20220620
  Transmission Date: 20220721
  Serious: Yes (Hospitalization, Other)
  Sender: FDA-Public Use
  Company Number: JP-GSKNCCC-Case-01514632_AE-59184

PATIENT

DRUGS (2)
  1. ZOVIRAX [Suspect]
     Active Substance: ACYCLOVIR
     Dosage: 200 MG, 1 TABLET AFTER BREAKFAST, ONLY ON MONDAY, WEDNESDAY AND FRIDAY
  2. PREDNISOLONE [Concomitant]
     Active Substance: PREDNISOLONE
     Dosage: UNK

REACTIONS (3)
  - Hospitalisation [Unknown]
  - Adult T-cell lymphoma/leukaemia [Unknown]
  - Inappropriate schedule of product administration [Unknown]
